FAERS Safety Report 22054974 (Version 1)
Quarter: 2023Q1

REPORT INFORMATION
  Report Type: Spontaneous
  Country: CN (occurrence: CN)
  Receive Date: 20230302
  Receipt Date: 20230302
  Transmission Date: 20230418
  Serious: Yes (Hospitalization, Other)
  Sender: FDA-Public Use
  Company Number: None

PATIENT
  Age: 11 Year
  Sex: Male
  Weight: 41.5 kg

DRUGS (7)
  1. CYCLOPHOSPHAMIDE [Suspect]
     Active Substance: CYCLOPHOSPHAMIDE
     Indication: Acute lymphocytic leukaemia
     Dosage: 1270 MG, QD, DILUTED WITH 150 ML OF 0.9 % SODIUM CHLORIDE
     Route: 042
     Dates: start: 20230212, end: 20230212
  2. SODIUM CHLORIDE [Suspect]
     Active Substance: SODIUM CHLORIDE
     Indication: Medication dilution
     Dosage: 0.9% 150 ML, QD, USED TO DILUTE 1270 MG OF CYCLOPHOSPHAMIDE, (DOSAGE FORM: INJECTION)
     Route: 042
     Dates: start: 20230212, end: 20230212
  3. SODIUM CHLORIDE [Suspect]
     Active Substance: SODIUM CHLORIDE
     Dosage: 36 MG, QD, ALONG WITH CYTARABINE 30 MG AND METHOTREXATE 12 MG, (DOSAGE FORM: INJECTION)
     Route: 037
     Dates: start: 20230214, end: 20230214
  4. SODIUM CHLORIDE [Suspect]
     Active Substance: SODIUM CHLORIDE
     Dosage: 0.9% 100 ML, QD, USED TO DILUTE 95 MG OF CYTARABINE HYDROCHLORIDE, (DOSAGE FORM: INJECTION)
     Route: 041
     Dates: start: 20230214, end: 20230217
  5. METHOTREXATE [Suspect]
     Active Substance: METHOTREXATE
     Indication: Acute lymphocytic leukaemia
     Dosage: 12 MG, QD, ALONG WITH CYTARABINE 30 MG AND SODIUM CHLORIDE 36 MG
     Route: 037
     Dates: start: 20230214, end: 20230214
  6. CYTARABINE HYDROCHLORIDE [Suspect]
     Active Substance: CYTARABINE HYDROCHLORIDE
     Indication: Acute lymphocytic leukaemia
     Dosage: 30 MG, QD, ALONG WITH METHOTREXATE 12 MG AND SODIUM CHLORIDE 36 MG
     Route: 037
     Dates: start: 20230214, end: 20230214
  7. CYTARABINE HYDROCHLORIDE [Suspect]
     Active Substance: CYTARABINE HYDROCHLORIDE
     Dosage: 95 MG, QD, DILUTED WITH 100 ML OF 0.9 % SODIUM CHLORIDE
     Route: 041
     Dates: start: 20230214, end: 20230217

REACTIONS (1)
  - Myelosuppression [Unknown]

NARRATIVE: CASE EVENT DATE: 20230216
